FAERS Safety Report 22528676 (Version 4)
Quarter: 2024Q1

REPORT INFORMATION
  Report Type: Spontaneous
  Country: US (occurrence: US)
  Receive Date: 20230607
  Receipt Date: 20240201
  Transmission Date: 20240409
  Serious: Yes (Other)
  Sender: FDA-Public Use
  Company Number: US-ABBVIE-5278161

PATIENT
  Sex: Male
  Weight: 86 kg

DRUGS (3)
  1. MAVYRET [Suspect]
     Active Substance: GLECAPREVIR\PIBRENTASVIR
     Indication: Hepatitis C
     Dosage: 3 TABLET?START DATE TEXT: FIVE TO SEVEN YEARS AGO?STOP DATE TEXT: FIVE TO SEVEN YEARS AGO?DURATIO...
     Route: 048
  2. GABAPENTIN [Concomitant]
     Active Substance: GABAPENTIN
     Indication: Bipolar disorder
  3. REMERON [Concomitant]
     Active Substance: MIRTAZAPINE
     Indication: Sleep disorder

REACTIONS (1)
  - Hepatic cirrhosis [Not Recovered/Not Resolved]
